FAERS Safety Report 8653612 (Version 3)
Quarter: 2012Q4

REPORT INFORMATION
  Report Type: 
  Country: US (occurrence: None)
  Receive Date: 20120622
  Receipt Date: 20121126
  Transmission Date: 20130627
  Serious: Yes (Hospitalization, Other)
  Sender: FDA-Public Use
  Company Number: JPI-P-021926

PATIENT
  Age: 38 Year
  Sex: Female

DRUGS (15)
  1. XYREM [Suspect]
     Indication: NARCOLEPSY
     Dosage: 6 GM (3 GM, 2 IN 1 D, ORAL; UNK ORAL; 7.5 GM (3.75 GM, 2 IN 1 D), ORAL
     Route: 048
     Dates: start: 20090804
  2. XYREM [Suspect]
     Indication: NARCOLEPSY
     Dosage: 6 GM (3 GM, 2 IN 1 D, ORAL; UNK ORAL; 7.5 GM (3.75 GM, 2 IN 1 D), ORAL
     Route: 048
  3. XYREM [Suspect]
     Indication: NARCOLEPSY
     Dosage: 6 GM (3 GM, 2 IN 1 D, ORAL; UNK ORAL; 7.5 GM (3.75 GM, 2 IN 1 D), ORAL
     Route: 048
     Dates: start: 20120507, end: 2012
  4. XYREM [Suspect]
     Indication: NARCOLEPSY
     Dosage: 7.5 GM (3.75 GM, 2 IN 1 D), ORAL
     Route: 048
     Dates: start: 2012
  5. OXYCODONE HYDROCHLORIDE [Concomitant]
  6. ZOLPIDEM [Concomitant]
  7. AMPHETAMINE, DEXTROAMPHETAMINE MIXED SALTS PSYCHOSTIMULANTS AND NOOTROPICS [Concomitant]
  8. DULOXETINE HYDROCHLORIDE [Concomitant]
  9. VITAMIN B12 [Concomitant]
  10. VITAMIN D3 [Concomitant]
  11. VALACYCLOVIR HYCROCHLORIDE [Concomitant]
  12. TRAMADOL [Concomitant]
  13. LORAZEPAM [Concomitant]
  14. NABILONE [Concomitant]
  15. GABAPENTIN [Concomitant]

REACTIONS (16)
  - Post procedural infection [None]
  - Fibromyalgia [None]
  - Initial insomnia [None]
  - Restlessness [None]
  - Intestinal obstruction [None]
  - Abnormal dreams [None]
  - Hangover [None]
  - Diarrhoea [None]
  - Endometriosis [None]
  - Condition aggravated [None]
  - Vaginal prolapse [None]
  - Uterine prolapse [None]
  - Bladder prolapse [None]
  - Rectal prolapse [None]
  - Insomnia [None]
  - Pelvic prolapse [None]
